FAERS Safety Report 9650161 (Version 1)
Quarter: 2013Q4

REPORT INFORMATION
  Report Type: Spontaneous
  Country: US (occurrence: US)
  Receive Date: 20131028
  Receipt Date: 20131028
  Transmission Date: 20140711
  Serious: No
  Sender: FDA-Public Use
  Company Number: US-PURDUE-USA-2013-0097560

PATIENT
  Sex: Male
  Weight: 113.38 kg

DRUGS (2)
  1. OXYCONTIN (NDA 22-272) [Suspect]
     Indication: PAIN
     Dosage: 20 MG, UNK
     Route: 048
     Dates: start: 2008
  2. OXYCONTIN (NDA 22-272) [Suspect]
     Indication: NEURALGIA

REACTIONS (4)
  - Acne [Unknown]
  - Weight increased [Unknown]
  - Hyperhidrosis [Unknown]
  - Drug effect decreased [Unknown]
